FAERS Safety Report 4386194-5 (Version None)
Quarter: 2004Q2

REPORT INFORMATION
  Report Type: 
  Country: None (occurrence: None)
  Receive Date: 20040628
  Receipt Date: 20040628
  Transmission Date: 20050107
  Serious: No
  Sender: FDA-Public Use
  Company Number: None

PATIENT
  Age: 65 Year
  Sex: Female
  Weight: 102.5129 kg

DRUGS (1)
  1. ACEBUTOLOL [Suspect]
     Dosage: 400 MG AM AND 200 PM

REACTIONS (2)
  - HEADACHE [None]
  - TACHYCARDIA [None]
